FAERS Safety Report 23673488 (Version 1)
Quarter: 2024Q1

REPORT INFORMATION
  Report Type: Spontaneous
  Country: BG (occurrence: None)
  Receive Date: 20240326
  Receipt Date: 20240326
  Transmission Date: 20240410
  Serious: Yes (Hospitalization)
  Sender: FDA-Public Use
  Company Number: 2024A070725

PATIENT
  Age: 40 Year
  Sex: Male

DRUGS (4)
  1. SYMBICORT [Suspect]
     Active Substance: BUDESONIDE\FORMOTEROL FUMARATE DIHYDRATE
     Indication: Asthma
     Dosage: 160/4 MCG 2 X 2, DOSE AND FREQUENCY UNKNOWN UNKNOWN
     Route: 055
     Dates: start: 202209
  2. TIOTROPIUM [Concomitant]
     Active Substance: TIOTROPIUM
     Route: 055
  3. ALBUTEROL [Concomitant]
     Active Substance: ALBUTEROL
     Dosage: AS REQUIRED
  4. OMALIZUMAB [Concomitant]
     Active Substance: OMALIZUMAB

REACTIONS (1)
  - Asthma [Recovered/Resolved]

NARRATIVE: CASE EVENT DATE: 20220901
